FAERS Safety Report 4743465-8 (Version None)
Quarter: 2005Q3

REPORT INFORMATION
  Report Type: 
  Country: None (occurrence: None)
  Receive Date: 20050809
  Receipt Date: 20050729
  Transmission Date: 20060218
  Serious: Yes (Death)
  Sender: FDA-Public Use
  Company Number: 2005US001008

PATIENT
  Age: 18 Month
  Sex: 0

DRUGS (1)
  1. AMBISOME [Suspect]
     Indication: VISCERAL LEISHMANIASIS
     Dosage: IV
     Route: 042
     Dates: start: 20050601

REACTIONS (1)
  - TRANSAMINASES INCREASED [None]
